FAERS Safety Report 19262340 (Version 1)
Quarter: 2021Q2

REPORT INFORMATION
  Report Type: Spontaneous
  Country: US (occurrence: US)
  Receive Date: 20210516
  Receipt Date: 20210516
  Transmission Date: 20210717
  Serious: No
  Sender: FDA-Public Use
  Company Number: US-SA-2021SA160336

PATIENT
  Sex: Female

DRUGS (10)
  1. COLLAGEN [Concomitant]
     Active Substance: COLLAGEN
     Dosage: 125?740MG
  2. LEXAPRO [Concomitant]
     Active Substance: ESCITALOPRAM OXALATE
     Dosage: 10MG
  3. LISINOPRIL. [Concomitant]
     Active Substance: LISINOPRIL
     Dosage: 10MG
  4. VITAMIN C [Concomitant]
     Active Substance: ASCORBIC ACID
  5. ALPRAZOLAM. [Concomitant]
     Active Substance: ALPRAZOLAM
  6. DUPIXENT [Suspect]
     Active Substance: DUPILUMAB
     Indication: ILLNESS
     Dosage: 600 MG, 1X
     Route: 058
  7. DUPIXENT [Suspect]
     Active Substance: DUPILUMAB
     Dosage: 300 MG, QOW
     Route: 058
  8. VYVANSE [Concomitant]
     Active Substance: LISDEXAMFETAMINE DIMESYLATE
  9. VITAMIN B COMPLEX [CYANOCOBALAMIN] [Concomitant]
  10. IRON [Concomitant]
     Active Substance: IRON
     Dosage: 10MG

REACTIONS (2)
  - Product use in unapproved indication [Unknown]
  - Heart rate increased [Unknown]
